FAERS Safety Report 9405769 (Version 4)
Quarter: 2013Q4

REPORT INFORMATION
  Report Type: Report from Study
  Country: GB (occurrence: GB)
  Receive Date: 20130717
  Receipt Date: 20131002
  Transmission Date: 20140711
  Serious: Yes (Other)
  Sender: FDA-Public Use
  Company Number: GB-GILEAD-2013-0079425

PATIENT
  Age: 0 Day
  Sex: Female

DRUGS (4)
  1. TENOFOVIR DISOPROXIL FUMARATE [Suspect]
     Indication: HIV INFECTION
     Dosage: 245 MG, QD
     Route: 064
     Dates: end: 20130709
  2. REYATAZ [Suspect]
     Indication: HIV INFECTION
     Dosage: 300 MG, QD
     Route: 064
     Dates: start: 20121204, end: 20130709
  3. NORVIR [Suspect]
     Indication: HIV INFECTION
     Dosage: 100 MG, QD
     Route: 064
     Dates: start: 20121204, end: 20130709
  4. EPZICOM [Suspect]
     Indication: HIV INFECTION
     Dosage: 1 DF, UNK
     Route: 064
     Dates: end: 20130709

REACTIONS (3)
  - Small for dates baby [Unknown]
  - Cerebral haemorrhage [Unknown]
  - Low birth weight baby [Unknown]
